FAERS Safety Report 17758325 (Version 1)
Quarter: 2020Q2

REPORT INFORMATION
  Report Type: Spontaneous
  Country: FR (occurrence: FR)
  Receive Date: 20200507
  Receipt Date: 20200507
  Transmission Date: 20200714
  Serious: Yes (Hospitalization)
  Sender: FDA-Public Use
  Company Number: FR-PFIZER INC-2020181739

PATIENT
  Age: 43 Year
  Sex: Male
  Weight: 65 kg

DRUGS (7)
  1. PREGABALIN. [Suspect]
     Active Substance: PREGABALIN
     Dosage: 800 MG, SINGLE
     Route: 048
     Dates: start: 20200328, end: 20200328
  2. MACROGOL [Concomitant]
     Active Substance: POLYETHYLENE GLYCOLS
     Indication: TOXICITY TO VARIOUS AGENTS
     Dosage: 120 G, SINGLE
     Route: 048
     Dates: start: 20200328, end: 20200328
  3. OXAZEPAM. [Suspect]
     Active Substance: OXAZEPAM
     Dosage: 800 MG, SINGLE
     Route: 048
     Dates: start: 20200328, end: 20200328
  4. LOXAPINE SUCCINATE. [Suspect]
     Active Substance: LOXAPINE SUCCINATE
     Dosage: 1 G, SINGLE
     Route: 048
     Dates: start: 20200328, end: 20200328
  5. SERTRALINE HCL [Suspect]
     Active Substance: SERTRALINE HYDROCHLORIDE
     Dosage: 600 MG, SINGLE
     Route: 048
     Dates: start: 20200328, end: 20200328
  6. RISPERIDONE. [Suspect]
     Active Substance: RISPERIDONE
     Dosage: 24 MG, SINGLE
     Route: 048
     Dates: start: 20200328, end: 20200328
  7. ZOPICLONE [Suspect]
     Active Substance: ZOPICLONE
     Dosage: 30 MG, SINGLE
     Route: 048
     Dates: start: 20200328, end: 20200328

REACTIONS (3)
  - Coma [Recovered/Resolved]
  - Overdose [Unknown]
  - Toxicity to various agents [Unknown]

NARRATIVE: CASE EVENT DATE: 20200328
